FAERS Safety Report 13785550 (Version 1)
Quarter: 2017Q3

REPORT INFORMATION
  Report Type: Spontaneous
  Country: IT (occurrence: DK)
  Receive Date: 20170725
  Receipt Date: 20170725
  Transmission Date: 20171127
  Serious: Yes (Hospitalization)
  Sender: FDA-Public Use
  Company Number: IT-AUROBINDO-AUR-APL-2017-37461

PATIENT
  Sex: Male

DRUGS (2)
  1. DONEPEZIL AUROBINDO [Suspect]
     Active Substance: DONEPEZIL
     Dosage: 10 MG, DAILY
     Route: 065
     Dates: start: 201606, end: 201607
  2. DONEPEZIL AUROBINDO [Suspect]
     Active Substance: DONEPEZIL
     Indication: DEMENTIA ALZHEIMER^S TYPE
     Dosage: 5 MG, DAILY
     Route: 065
     Dates: start: 201604

REACTIONS (5)
  - Feeling abnormal [Unknown]
  - Memory impairment [Unknown]
  - Hyperhidrosis [Unknown]
  - Pallor [Unknown]
  - Transient ischaemic attack [Unknown]

NARRATIVE: CASE EVENT DATE: 2016
